FAERS Safety Report 4896169-5 (Version None)
Quarter: 2006Q1

REPORT INFORMATION
  Report Type: 
  Country: None (occurrence: None)
  Receive Date: 20060131
  Receipt Date: 20051031
  Transmission Date: 20060701
  Serious: Yes (Other)
  Sender: FDA-Public Use
  Company Number: CA-BOEHRINGER INGELHEIM PHARMACEUTICALS, INC.-2005-CN-01025CN

PATIENT
  Sex: Male

DRUGS (7)
  1. FLOMAX [Suspect]
     Indication: BENIGN PROSTATIC HYPERPLASIA
     Route: 048
  2. COUMADIN [Concomitant]
  3. ATACAND [Concomitant]
  4. LASIX [Concomitant]
  5. LANOXIN [Concomitant]
  6. PANTOPRAZOLE SODIUM [Concomitant]
  7. INDRA [Concomitant]

REACTIONS (4)
  - IRIS ATROPHY [None]
  - IRIS DISORDER [None]
  - POST PROCEDURAL COMPLICATION [None]
  - PROCEDURAL COMPLICATION [None]
